FAERS Safety Report 6516554-5 (Version None)
Quarter: 2009Q4

REPORT INFORMATION
  Report Type: 
  Country: None (occurrence: None)
  Receive Date: 20091223
  Receipt Date: 20091216
  Transmission Date: 20100525
  Serious: Yes (Hospitalization)
  Sender: FDA-Public Use
  Company Number: JP-ASTRAZENECA-2009SE04336

PATIENT
  Age: 27562 Day
  Sex: Female
  Weight: 34 kg

DRUGS (10)
  1. IRESSA [Suspect]
     Indication: LUNG ADENOCARCINOMA
     Route: 048
     Dates: start: 20081126, end: 20090528
  2. IRESSA [Suspect]
     Route: 048
     Dates: start: 20090529, end: 20090604
  3. IRESSA [Suspect]
     Route: 048
     Dates: start: 20090611, end: 20090706
  4. IRESSA [Suspect]
     Route: 048
     Dates: start: 20091013
  5. INTEBAN SP [Concomitant]
     Indication: CANCER PAIN
     Route: 048
     Dates: start: 20081110
  6. PARIET [Concomitant]
     Indication: REFLUX OESOPHAGITIS
     Route: 048
     Dates: start: 20081110, end: 20090709
  7. BONALON 35MG [Concomitant]
     Indication: OSTEOPOROSIS
     Route: 048
     Dates: start: 20081123
  8. ONEALFA [Concomitant]
     Indication: OSTEOPOROSIS
     Route: 048
     Dates: start: 20081215
  9. AMOBAN [Concomitant]
     Indication: INSOMNIA
     Route: 048
     Dates: start: 20081216
  10. TAKEPRON [Concomitant]
     Indication: REFLUX OESOPHAGITIS
     Route: 048
     Dates: start: 20090710

REACTIONS (2)
  - ENTEROCOLITIS [None]
  - STOMATITIS [None]
